FAERS Safety Report 4395511-1 (Version None)
Quarter: 2004Q3

REPORT INFORMATION
  Report Type: 
  Country: None (occurrence: None)
  Receive Date: 20040712
  Receipt Date: 20040712
  Transmission Date: 20050211
  Serious: Yes (Other)
  Sender: FDA-Public Use
  Company Number: None

PATIENT
  Age: 71 Year
  Sex: Female
  Weight: 96.6 kg

DRUGS (11)
  1. OXYBUTYNIN CHLORIDE [Suspect]
  2. POTASSIUM CHLORIDE [Concomitant]
  3. FOSINOPRIL NA [Concomitant]
  4. ADALAT CC [Concomitant]
  5. FUROSEMIDE [Concomitant]
  6. ISOSORBIDE DINITRATE [Concomitant]
  7. ATENOLOL [Concomitant]
  8. PYRIDOXINE HCL [Concomitant]
  9. LANOXIN [Concomitant]
  10. SIMVASTATIN [Concomitant]
  11. OXYBUTYNIN CHLORIDE [Concomitant]

REACTIONS (1)
  - DRY MOUTH [None]
